FAERS Safety Report 10460272 (Version 2)
Quarter: 2014Q4

REPORT INFORMATION
  Report Type: Spontaneous
  Country: BR (occurrence: BR)
  Receive Date: 20140917
  Receipt Date: 20141010
  Transmission Date: 20150528
  Serious: Yes (Other)
  Sender: FDA-Public Use
  Company Number: BR-PFIZER INC-2014255954

PATIENT
  Sex: Female

DRUGS (1)
  1. ZITHROMAX [Suspect]
     Active Substance: AZITHROMYCIN DIHYDRATE
     Indication: SINUSITIS BACTERIAL
     Dosage: 2 DF, 2 TABLETS FOR 6 DAYS

REACTIONS (39)
  - Visual impairment [Not Recovered/Not Resolved]
  - Blister [Recovering/Resolving]
  - Ocular hyperaemia [Recovered/Resolved]
  - Dysphagia [Recovering/Resolving]
  - Mental disorder [Recovering/Resolving]
  - Myalgia [Recovering/Resolving]
  - Arthralgia [Recovering/Resolving]
  - Chills [Recovering/Resolving]
  - Nausea [Recovering/Resolving]
  - Swelling face [Recovering/Resolving]
  - Stomatitis [Recovering/Resolving]
  - Skin irritation [Recovering/Resolving]
  - Throat irritation [Recovering/Resolving]
  - Faeces discoloured [Recovering/Resolving]
  - Dysphonia [Recovering/Resolving]
  - Confusional state [Recovering/Resolving]
  - Paranoia [Recovering/Resolving]
  - Muscle spasms [Not Recovered/Not Resolved]
  - Diarrhoea [Recovering/Resolving]
  - Pruritus [Recovering/Resolving]
  - Eye irritation [Not Recovered/Not Resolved]
  - Abdominal discomfort [Recovering/Resolving]
  - Vision blurred [Recovering/Resolving]
  - Pain [Recovering/Resolving]
  - Fatigue [Recovering/Resolving]
  - Skin disorder [Recovering/Resolving]
  - Ear pain [Recovering/Resolving]
  - Tinnitus [Recovering/Resolving]
  - Hearing impaired [Recovering/Resolving]
  - Erythema [Recovering/Resolving]
  - Dizziness [Recovering/Resolving]
  - Headache [Recovering/Resolving]
  - Heart rate irregular [Recovering/Resolving]
  - Muscle twitching [Recovering/Resolving]
  - Dry skin [Recovering/Resolving]
  - Thirst [Recovering/Resolving]
  - Syncope [Recovering/Resolving]
  - Vomiting [Recovering/Resolving]
  - Swollen tongue [Recovering/Resolving]
